FAERS Safety Report 8182237-1 (Version None)
Quarter: 2012Q1

REPORT INFORMATION
  Report Type: 
  Country: None (occurrence: None)
  Receive Date: 20120302
  Receipt Date: 20120224
  Transmission Date: 20120608
  Serious: Yes (Other)
  Sender: FDA-Public Use
  Company Number: PHHY2012ES017086

PATIENT
  Sex: Female
  Weight: 22 kg

DRUGS (3)
  1. APIRETAL [Concomitant]
     Indication: PYREXIA
     Dosage: UNK UKN, UNK
  2. AMOXICILLIN [Suspect]
     Indication: TONSILLITIS
     Dosage: 6 ML, TID
     Route: 048
     Dates: start: 20111020, end: 20111020
  3. DALSY [Concomitant]
     Indication: PYREXIA
     Dosage: UNK UKN, UNK

REACTIONS (3)
  - ANGIOEDEMA [None]
  - GENERALISED OEDEMA [None]
  - PRURITUS GENERALISED [None]
